FAERS Safety Report 18305767 (Version 2)
Quarter: 2020Q4

REPORT INFORMATION
  Report Type: Report from Study
  Country: US (occurrence: US)
  Receive Date: 20200923
  Receipt Date: 20201012
  Transmission Date: 20210113
  Serious: Yes (Hospitalization, Other)
  Sender: FDA-Public Use
  Company Number: US-EXELIXIS-CABO-20032589

PATIENT
  Sex: Male

DRUGS (1)
  1. CABOMETYX [Suspect]
     Active Substance: CABOZANTINIB S-MALATE
     Indication: RENAL CELL CARCINOMA
     Dosage: 60 MG
     Dates: start: 20200814

REACTIONS (8)
  - Blood pressure fluctuation [Recovered/Resolved]
  - Orthostatic hypotension [Recovered/Resolved]
  - Acne [Not Recovered/Not Resolved]
  - Chronic obstructive pulmonary disease [Recovered/Resolved]
  - Dysphonia [Not Recovered/Not Resolved]
  - Haemoglobin decreased [Unknown]
  - Taste disorder [Unknown]
  - Mucosal disorder [Unknown]
